FAERS Safety Report 5803546-4 (Version None)
Quarter: 2008Q2

REPORT INFORMATION
  Report Type: 
  Country: None (occurrence: None)
  Receive Date: 20080630
  Receipt Date: 20080402
  Transmission Date: 20081010
  Serious: No
  Sender: FDA-Public Use
  Company Number: PHEH2008US02872

PATIENT
  Age: 76 Year
  Sex: Female
  Weight: 58 kg

DRUGS (3)
  1. EXJADE [Suspect]
     Indication: IRON OVERLOAD
     Dosage: 1125MG, QD, ORAL
     Route: 048
     Dates: start: 20071211
  2. DECITABINE (DECITABINE) [Concomitant]
  3. HYDREA [Concomitant]

REACTIONS (2)
  - HEAD DISCOMFORT [None]
  - HEADACHE [None]
